FAERS Safety Report 8180053-8 (Version None)
Quarter: 2012Q1

REPORT INFORMATION
  Report Type: 
  Country: None (occurrence: None)
  Receive Date: 20120302
  Receipt Date: 20120302
  Transmission Date: 20120608
  Serious: Yes (Other)
  Sender: FDA-Public Use
  Company Number: None

PATIENT
  Age: 62 Year
  Sex: Female
  Weight: 90 kg

DRUGS (6)
  1. HYDROMORPHONE HCL [Concomitant]
  2. PROFILNINE [Suspect]
     Indication: SURGERY
     Dosage: 4,000 UNITS
     Route: 040
     Dates: start: 20120229, end: 20120229
  3. PROFILNINE [Suspect]
     Indication: INTERNATIONAL NORMALISED RATIO INCREASED
     Dosage: 4,000 UNITS
     Route: 040
     Dates: start: 20120229, end: 20120229
  4. MIRALAX [Concomitant]
  5. WARFARIN SODIUM [Concomitant]
  6. ORAL CONTRAST [Concomitant]

REACTIONS (1)
  - UNRESPONSIVE TO STIMULI [None]
